FAERS Safety Report 23892551 (Version 1)
Quarter: 2024Q2

REPORT INFORMATION
  Report Type: Spontaneous
  Country: US (occurrence: None)
  Receive Date: 20240524
  Receipt Date: 20240524
  Transmission Date: 20240716
  Serious: No
  Sender: FDA-Public Use
  Company Number: US-ROCHE-3436318

PATIENT
  Sex: Female
  Weight: 56.75 kg

DRUGS (3)
  1. OCREVUS [Suspect]
     Active Substance: OCRELIZUMAB
     Indication: Relapsing-remitting multiple sclerosis
     Dosage: HER LAST DOSE WAS IN /APR/2023
     Route: 042
     Dates: start: 2020
  2. LIPITOR [Concomitant]
     Active Substance: ATORVASTATIN CALCIUM
  3. AMPYRA [Concomitant]
     Active Substance: DALFAMPRIDINE

REACTIONS (6)
  - Cough [Not Recovered/Not Resolved]
  - Throat clearing [Not Recovered/Not Resolved]
  - Bronchitis [Unknown]
  - Balance disorder [Not Recovered/Not Resolved]
  - Hypoaesthesia [Unknown]
  - Paraesthesia [Unknown]
